FAERS Safety Report 18111355 (Version 1)
Quarter: 2020Q3

REPORT INFORMATION
  Report Type: Spontaneous
  Country: None (occurrence: US)
  Receive Date: 20200804
  Receipt Date: 20200804
  Transmission Date: 20201103
  Serious: Yes (Other)
  Sender: FDA-Public Use
  Company Number: US-IMPRIMIS NJOF-2088149

PATIENT

DRUGS (1)
  1. TRIAMCINOLONE?MOXIFLOXACIN (15/1) MG/ML [Suspect]
     Active Substance: MOXIFLOXACIN\TRIAMCINOLONE

REACTIONS (1)
  - Endophthalmitis [None]
